FAERS Safety Report 12739752 (Version 1)
Quarter: 2016Q3

REPORT INFORMATION
  Report Type: Spontaneous
  Country: US (occurrence: US)
  Receive Date: 20160910
  Receipt Date: 20160910
  Transmission Date: 20161109
  Serious: Yes (Hospitalization)
  Sender: FDA-Public Use
  Company Number: None

PATIENT
  Age: 78 Year
  Sex: Male
  Weight: 83.5 kg

DRUGS (3)
  1. VELCADE [Suspect]
     Active Substance: BORTEZOMIB
     Dates: end: 20160825
  2. DEXAMETHASONE. [Suspect]
     Active Substance: DEXAMETHASONE
     Dates: end: 20160826
  3. LENALIDOMIDE (CC-5013) [Suspect]
     Active Substance: LENALIDOMIDE
     Dates: end: 20160828

REACTIONS (9)
  - Fall [None]
  - Decreased appetite [None]
  - Hypophagia [None]
  - Thrombocytopenia [None]
  - Head injury [None]
  - Cough [None]
  - Ventricular extrasystoles [None]
  - Dizziness postural [None]
  - Contusion [None]

NARRATIVE: CASE EVENT DATE: 20160829
